FAERS Safety Report 4432844-4 (Version None)
Quarter: 2004Q3

REPORT INFORMATION
  Report Type: 
  Country: None (occurrence: None)
  Receive Date: 20040823
  Receipt Date: 20040805
  Transmission Date: 20050211
  Serious: Yes (Hospitalization)
  Sender: FDA-Public Use
  Company Number: 208524

PATIENT
  Age: 55 Year
  Sex: Female

DRUGS (4)
  1. BEVACIZUMAB (BEVACIZUMAB) PWDR + SOLVENT,INFUSION SOLN,100MG [Suspect]
     Indication: CARCINOMA
     Dosage: 10 MG/KG,Q2W,INTRAVENOUS
     Route: 042
     Dates: start: 20040510
  2. HYDROXYUREA [Suspect]
     Indication: CARCINOMA
     Dosage: 500 MG, QD, ORAL
     Route: 048
     Dates: start: 20040509
  3. FLUOROURACIL [Suspect]
     Indication: CARCINOMA
     Dosage: 600 MG/M2,QD, INTRAVENOUS
     Route: 042
     Dates: start: 20040509
  4. RADIOTHERAPY [Concomitant]

REACTIONS (4)
  - BLINDNESS UNILATERAL [None]
  - CEREBRAL INFARCTION [None]
  - CHEST X-RAY ABNORMAL [None]
  - INFECTION [None]
